FAERS Safety Report 8242235-6 (Version None)
Quarter: 2012Q1

REPORT INFORMATION
  Report Type: 
  Country: None (occurrence: None)
  Receive Date: 20120329
  Receipt Date: 20120321
  Transmission Date: 20120608
  Serious: Yes (Hospitalization)
  Sender: FDA-Public Use
  Company Number: GB-UCBSA-053895

PATIENT
  Age: 57 Year
  Sex: Female

DRUGS (7)
  1. TRAMADOL HCL [Concomitant]
  2. TRAVATAN EYE DROPS [Concomitant]
     Route: 047
  3. EPROSARTAN [Concomitant]
  4. CIMZIA [Suspect]
     Dosage: 2 INJECTIONS
     Route: 058
     Dates: start: 20120316, end: 20120301
  5. ACETAMINOPHEN AND CODEINE PHOSPHATE [Concomitant]
  6. LEFLUNOMIDE [Concomitant]
  7. METHOTREXATE [Concomitant]

REACTIONS (4)
  - RHEUMATOID ARTHRITIS [None]
  - BLOOD PRESSURE INCREASED [None]
  - BODY TEMPERATURE INCREASED [None]
  - HOT FLUSH [None]
